FAERS Safety Report 13297561 (Version 1)
Quarter: 2017Q1

REPORT INFORMATION
  Report Type: Spontaneous
  Country: US (occurrence: US)
  Receive Date: 20170306
  Receipt Date: 20170306
  Transmission Date: 20170428
  Serious: Yes (Hospitalization)
  Sender: FDA-Public Use
  Company Number: US-ASTELLAS-2017US008141

PATIENT
  Age: 73 Year
  Sex: Female

DRUGS (1)
  1. PROGRAF [Suspect]
     Active Substance: TACROLIMUS\TACROLIMUS ANHYDROUS
     Indication: HEART TRANSPLANT
     Dosage: 2 CAPSULES IN THE MORNING AND 1 CAPSULE IN THE EVENING
     Route: 048
     Dates: start: 200407

REACTIONS (3)
  - Fall [Unknown]
  - Femur fracture [Unknown]
  - Chills [Unknown]

NARRATIVE: CASE EVENT DATE: 201612
